FAERS Safety Report 5610789-1 (Version None)
Quarter: 2008Q1

REPORT INFORMATION
  Report Type: 
  Country: None (occurrence: None)
  Receive Date: 20080201
  Receipt Date: 20080124
  Transmission Date: 20080703
  Serious: Yes (Other)
  Sender: FDA-Public Use
  Company Number: ES-BAYER-200811969GPV

PATIENT
  Age: 42 Year
  Sex: Male

DRUGS (1)
  1. ACTIRA [Suspect]
     Indication: SINUSITIS
     Route: 048
     Dates: start: 20071201

REACTIONS (4)
  - ARTHRALGIA [None]
  - JOINT EFFUSION [None]
  - ROTATOR CUFF SYNDROME [None]
  - TENDON RUPTURE [None]
